FAERS Safety Report 6457592-0 (Version None)
Quarter: 2009Q4

REPORT INFORMATION
  Report Type: 
  Country: None (occurrence: None)
  Receive Date: 20091125
  Receipt Date: 20091120
  Transmission Date: 20100525
  Serious: Yes (Hospitalization)
  Sender: FDA-Public Use
  Company Number: ZA-SANOFI-AVENTIS-200919805GDDC

PATIENT
  Age: 37 Year
  Sex: Female

DRUGS (3)
  1. DOCETAXEL [Suspect]
     Route: 042
     Dates: start: 20080520, end: 20080520
  2. BETANOID [Concomitant]
     Route: 048
     Dates: start: 20080520
  3. ZAMANON [Concomitant]
     Route: 042
     Dates: start: 20080520

REACTIONS (4)
  - ANAEMIA [None]
  - HAEMOPTYSIS [None]
  - PLATELET COUNT DECREASED [None]
  - STOMATITIS [None]
